FAERS Safety Report 16279316 (Version 4)
Quarter: 2019Q2

REPORT INFORMATION
  Report Type: Spontaneous
  Country: ES (occurrence: ES)
  Receive Date: 20190507
  Receipt Date: 20190522
  Transmission Date: 20190711
  Serious: Yes (Life-Threatening, Hospitalization, Disabling, Congenital Anomaly, Other)
  Sender: FDA-Public Use
  Company Number: ES-AUROBINDO-AUR-APL-2019-013244

PATIENT

DRUGS (5)
  1. COLESTIPOL [Concomitant]
     Active Substance: COLESTIPOL
     Indication: DYSLIPIDAEMIA
     Dosage: UNK
     Route: 065
  2. EZETIMIBE TABLETS [Suspect]
     Active Substance: EZETIMIBE
     Indication: GLYCOGEN STORAGE DISEASE TYPE V
     Dosage: 10 MILLIGRAM, ONCE A DAY
     Route: 048
  3. FENOFIBRATE. [Concomitant]
     Active Substance: FENOFIBRATE
     Indication: GLYCOGEN STORAGE DISEASE TYPE V
     Dosage: 145 MILLIGRAM, ONCE A DAY
     Route: 065
  4. ATORVASTATIN [Suspect]
     Active Substance: ATORVASTATIN
     Indication: DYSLIPIDAEMIA
     Dosage: 20 MILLIGRAM, ONCE A DAY
     Route: 065
  5. ALIROCUMAB [Concomitant]
     Active Substance: ALIROCUMAB
     Indication: GLYCOGEN STORAGE DISEASE TYPE V
     Dosage: 150 MILLIGRAM, CYCLICAL/ EVERY 14 DAYS
     Route: 058
     Dates: start: 2017

REACTIONS (6)
  - Rhabdomyolysis [Recovered/Resolved]
  - Product use in unapproved indication [Unknown]
  - Low density lipoprotein increased [Unknown]
  - Glycogen storage disease type V [Recovered/Resolved]
  - Drug ineffective [Recovered/Resolved]
  - Haematuria [Unknown]
